FAERS Safety Report 8369125-2 (Version None)
Quarter: 2012Q2

REPORT INFORMATION
  Report Type: 
  Country: None (occurrence: None)
  Receive Date: 20120516
  Receipt Date: 20120516
  Transmission Date: 20120825
  Serious: Yes (Other)
  Sender: FDA-Public Use
  Company Number: None

PATIENT
  Age: 47 Year
  Sex: Male
  Weight: 95.5 kg

DRUGS (1)
  1. HEPARIN SODIUM [Suspect]
     Indication: DEVICE THERAPY
     Dosage: 10,000 UNITS ONCE IV
     Route: 042
     Dates: start: 20120427, end: 20120427

REACTIONS (2)
  - PROCEDURAL COMPLICATION [None]
  - DRUG INEFFECTIVE [None]
